FAERS Safety Report 15437076 (Version 2)
Quarter: 2018Q4

REPORT INFORMATION
  Report Type: Spontaneous
  Country: US (occurrence: US)
  Receive Date: 20180927
  Receipt Date: 20181231
  Transmission Date: 20190204
  Serious: No
  Sender: FDA-Public Use
  Company Number: US-CLOVIS ONCOLOGY-CLO-2018-001237

PATIENT
  Age: 71 Year
  Sex: Female

DRUGS (2)
  1. LYRICA [Concomitant]
     Active Substance: PREGABALIN
     Indication: NEURALGIA
  2. RUBRACA [Suspect]
     Active Substance: RUCAPARIB CAMSYLATE
     Indication: OVARIAN CANCER
     Dosage: 600 MG, BID
     Route: 048
     Dates: start: 20180822

REACTIONS (10)
  - Vomiting [Recovered/Resolved]
  - Product dose omission [Unknown]
  - Diarrhoea [Not Recovered/Not Resolved]
  - Nausea [Recovering/Resolving]
  - Pain in extremity [Recovered/Resolved]
  - Pruritus [Recovering/Resolving]
  - Hypoaesthesia [Recovered/Resolved]
  - Anxiety [Unknown]
  - Decreased appetite [Unknown]
  - Inappropriate schedule of product administration [Unknown]

NARRATIVE: CASE EVENT DATE: 201808
